FAERS Safety Report 10420185 (Version 1)
Quarter: 2014Q3

REPORT INFORMATION
  Report Type: Report from Study
  Country: US (occurrence: None)
  Receive Date: 20140804
  Receipt Date: 20140804
  Transmission Date: 20150326
  Serious: Yes (Hospitalization)
  Sender: FDA-Public Use
  Company Number: 2013US008712

PATIENT
  Age: 68 Year
  Sex: Female
  Weight: 63.5 kg

DRUGS (7)
  1. PREDNISONE (PREDNISONE) [Concomitant]
     Active Substance: PREDNISONE
  2. SYNTHROID [Concomitant]
     Active Substance: LEVOTHYROXINE SODIUM
  3. LISINOPRIL (LISINOPRIL) [Concomitant]
     Active Substance: LISINOPRIL
  4. GLASSIA [Suspect]
     Active Substance: .ALPHA.1-PROTEINASE INHIBITOR HUMAN
     Indication: ALPHA-1 ANTI-TRYPSIN DEFICIENCY
     Route: 042
     Dates: start: 201212
  5. OXYGEN (OXYGEN) [Concomitant]
     Active Substance: OXYGEN
  6. DILTIAZEM (DILTIAZEM) [Concomitant]
  7. LANOXIN [Concomitant]
     Active Substance: DIGOXIN

REACTIONS (8)
  - Pneumonia [None]
  - Insomnia [None]
  - Spinal fracture [None]
  - Blood pressure increased [None]
  - Dyspnoea [None]
  - Blood urine present [None]
  - Osteoporotic fracture [None]
  - Aphagia [None]

NARRATIVE: CASE EVENT DATE: 20130204
